FAERS Safety Report 23376055 (Version 1)
Quarter: 2024Q1

REPORT INFORMATION
  Report Type: Spontaneous
  Country: US (occurrence: US)
  Receive Date: 20240108
  Receipt Date: 20240108
  Transmission Date: 20240409
  Serious: No
  Sender: FDA-Public Use
  Company Number: US-JNJFOC-20240101106

PATIENT
  Sex: Female

DRUGS (1)
  1. MOTRIN INFANTS [Suspect]
     Active Substance: IBUPROFEN
     Indication: Product used for unknown indication
     Dosage: TASTE THE MEDICATION
     Route: 048

REACTIONS (4)
  - Oral discomfort [Unknown]
  - Paraesthesia oral [Unknown]
  - Product administered to patient of inappropriate age [Unknown]
  - Product use in unapproved indication [Unknown]
